FAERS Safety Report 19978799 (Version 1)
Quarter: 2021Q4

REPORT INFORMATION
  Report Type: Spontaneous
  Country: FR (occurrence: FR)
  Receive Date: 20211020
  Receipt Date: 20211020
  Transmission Date: 20220303
  Serious: Yes (Hospitalization)
  Sender: FDA-Public Use
  Company Number: None

PATIENT
  Age: 66 Year
  Sex: Female

DRUGS (12)
  1. OXYCODONE HYDROCHLORIDE [Suspect]
     Active Substance: OXYCODONE HYDROCHLORIDE
     Indication: Product used for unknown indication
     Dosage: 5 MG, UNK
     Route: 048
     Dates: start: 202109
  2. RACECADOTRIL [Suspect]
     Active Substance: RACECADOTRIL
     Indication: Product used for unknown indication
     Dosage: 100 MG, Q8H
     Route: 048
     Dates: start: 202109
  3. HALOPERIDOL [Suspect]
     Active Substance: HALOPERIDOL
     Indication: Nausea
     Dosage: 5 GTT, UNK
     Route: 048
     Dates: start: 202109
  4. OXYCODONE [Suspect]
     Active Substance: OXYCODONE
     Indication: Product used for unknown indication
     Dosage: 5 MG, Q12H
     Route: 048
     Dates: start: 202109
  5. ACETAMINOPHEN [Suspect]
     Active Substance: ACETAMINOPHEN
     Indication: Product used for unknown indication
     Dosage: 1 G, UNK (MAX 2G/24, 12H ENTRE CHAQUE PRISE)
     Route: 041
     Dates: start: 202109, end: 20210920
  6. PHLOROGLUCINOL DIHYDRATE [Suspect]
     Active Substance: PHLOROGLUCINOL DIHYDRATE
     Indication: Product used for unknown indication
     Dosage: 80 MG, UNK (MAX 240MG/J, 6H ENTRE DEUX PRISES)
     Route: 042
     Dates: start: 202109
  7. CLAVULANIC ACID [Suspect]
     Active Substance: CLAVULANIC ACID
     Indication: Acute endocarditis
     Dosage: 200 MG, Q8H
     Route: 042
     Dates: start: 20210902, end: 20210920
  8. VANCOMYCIN [Suspect]
     Active Substance: VANCOMYCIN
     Indication: Acute endocarditis
     Dosage: UNK
     Route: 065
     Dates: start: 20210831, end: 20210910
  9. PANTOPRAZOLE [Suspect]
     Active Substance: PANTOPRAZOLE
     Indication: Product used for unknown indication
     Dosage: 40 MG, DAILY
     Route: 042
     Dates: start: 202109
  10. METOCLOPRAMIDE [Suspect]
     Active Substance: METOCLOPRAMIDE
     Indication: Product used for unknown indication
     Dosage: 10 MG, UNK
     Route: 042
     Dates: start: 202109
  11. MONTMORILLONITE [Suspect]
     Active Substance: MONTMORILLONITE
     Indication: Product used for unknown indication
     Dosage: 3 G, Q8H
     Route: 048
     Dates: start: 202109
  12. AMOXICILLIN [Suspect]
     Active Substance: AMOXICILLIN
     Indication: Acute endocarditis
     Dosage: 2 G, Q4H
     Route: 042
     Dates: start: 20210902, end: 20210920

REACTIONS (1)
  - Hepatitis acute [Recovering/Resolving]

NARRATIVE: CASE EVENT DATE: 20210920
